FAERS Safety Report 11937061 (Version 2)
Quarter: 2016Q1

REPORT INFORMATION
  Report Type: Spontaneous
  Country: US (occurrence: US)
  Receive Date: 20160121
  Receipt Date: 20160318
  Transmission Date: 20160526
  Serious: No
  Sender: FDA-Public Use
  Company Number: US-009507513-1601USA003485

PATIENT
  Age: 21 Year
  Sex: Female
  Weight: 129.25 kg

DRUGS (2)
  1. NEXPLANON [Suspect]
     Active Substance: ETONOGESTREL
     Dosage: 68 MG, 1 ROD EVERY 3 YEARS
     Route: 059
     Dates: start: 20151230, end: 20151230
  2. NEXPLANON [Suspect]
     Active Substance: ETONOGESTREL
     Dosage: 68 MG, 1 ROD EVERY 3 YEARS
     Route: 059
     Dates: start: 20151230

REACTIONS (3)
  - Device deployment issue [Recovered/Resolved]
  - Device difficult to use [Recovered/Resolved]
  - No adverse event [Unknown]

NARRATIVE: CASE EVENT DATE: 20151230
